FAERS Safety Report 23874304 (Version 1)
Quarter: 2024Q2

REPORT INFORMATION
  Report Type: Spontaneous
  Country: SE (occurrence: SE)
  Receive Date: 20240520
  Receipt Date: 20240520
  Transmission Date: 20240716
  Serious: Yes (Hospitalization)
  Sender: FDA-Public Use
  Company Number: SE-ROCHE-3561310

PATIENT

DRUGS (2)
  1. RITUXIMAB [Suspect]
     Active Substance: RITUXIMAB
     Indication: Lymphoma
     Dosage: UNK
     Route: 065
  2. BENDAMUSTINE [Suspect]
     Active Substance: BENDAMUSTINE
     Indication: Lymphoma
     Dosage: UNK
     Route: 065

REACTIONS (8)
  - Pallor [Unknown]
  - Chills [Unknown]
  - Tachycardia [Unknown]
  - Pyrexia [Unknown]
  - Cold sweat [Unknown]
  - Dizziness [Unknown]
  - Investigation abnormal [Unknown]
  - Off label use [Unknown]
